FAERS Safety Report 24046251 (Version 1)
Quarter: 2024Q3

REPORT INFORMATION
  Report Type: Spontaneous
  Country: US (occurrence: None)
  Receive Date: 20240703
  Receipt Date: 20240703
  Transmission Date: 20241016
  Serious: Yes (Hospitalization)
  Sender: Public
  Company Number: None

PATIENT
  Age: 71 Year
  Sex: Female
  Weight: 162.6 kg

DRUGS (7)
  1. CARBOPLATIN [Suspect]
     Active Substance: CARBOPLATIN
     Dates: end: 20240514
  2. PACLITAXEL [Concomitant]
     Active Substance: PACLITAXEL
     Dates: end: 20240514
  3. GABAPENTIN [Concomitant]
     Active Substance: GABAPENTIN
  4. JANUVIA [Concomitant]
     Active Substance: SITAGLIPTIN PHOSPHATE
  5. LANTUS [Concomitant]
     Active Substance: INSULIN GLARGINE
  6. ONDANSETRON [Concomitant]
     Active Substance: ONDANSETRON
  7. TRAMADOL [Concomitant]
     Active Substance: TRAMADOL\TRAMADOL HYDROCHLORIDE

REACTIONS (3)
  - Dysphagia [None]
  - Visual impairment [None]
  - Confusional state [None]

NARRATIVE: CASE EVENT DATE: 20240624
